FAERS Safety Report 11113434 (Version 1)
Quarter: 2015Q2

REPORT INFORMATION
  Report Type: Spontaneous
  Country: US (occurrence: US)
  Receive Date: 20150514
  Receipt Date: 20150514
  Transmission Date: 20150821
  Serious: Yes (Hospitalization)
  Sender: FDA-Public Use
  Company Number: US-CELGENE-USA-2015051035

PATIENT
  Age: 51 Year
  Sex: Male

DRUGS (1)
  1. OTEZLA [Suspect]
     Active Substance: APREMILAST
     Indication: PSORIASIS
     Route: 048
     Dates: start: 2015, end: 20150427

REACTIONS (4)
  - Headache [Unknown]
  - Arthralgia [Unknown]
  - Swelling face [Unknown]
  - Muscle spasms [Unknown]

NARRATIVE: CASE EVENT DATE: 20150427
